FAERS Safety Report 7020812-8 (Version None)
Quarter: 2010Q3

REPORT INFORMATION
  Report Type: 
  Country: None (occurrence: None)
  Receive Date: 20100929
  Receipt Date: 20100927
  Transmission Date: 20110219
  Serious: Yes (Hospitalization)
  Sender: FDA-Public Use
  Company Number: IT-MERCK-1009ITA00035

PATIENT
  Age: 78 Year
  Sex: Female

DRUGS (8)
  1. SINEMET [Suspect]
     Indication: PARKINSON'S DISEASE
     Route: 048
     Dates: start: 20070701, end: 20100628
  2. ROPINIROLE HYDROCHLORIDE [Suspect]
     Indication: PARKINSON'S DISEASE
     Route: 048
     Dates: start: 20070701, end: 20100628
  3. BENSERAZIDE HYDROCHLORIDE AND LEVODOPA [Concomitant]
     Route: 065
     Dates: start: 20070601
  4. AMANTADINE HYDROCHLORIDE [Concomitant]
     Route: 065
     Dates: start: 20070701
  5. FUROSEMIDE [Concomitant]
     Route: 065
  6. ASPIRIN LYSINE [Concomitant]
     Route: 048
  7. AMILORIDE HYDROCHLORIDE AND HYDROCHLOROTHIAZIDE [Concomitant]
     Route: 048
     Dates: start: 20100617
  8. RAMIPRIL [Concomitant]
     Route: 065

REACTIONS (2)
  - COGNITIVE DISORDER [None]
  - HALLUCINATION [None]
